FAERS Safety Report 4571906-8 (Version None)
Quarter: 2005Q1

REPORT INFORMATION
  Report Type: 
  Country: None (occurrence: None)
  Receive Date: 20050207
  Receipt Date: 20041112
  Transmission Date: 20050727
  Serious: Yes (Other)
  Sender: FDA-Public Use
  Company Number: PHNU2004DE03840

PATIENT
  Age: 58 Year
  Sex: Female
  Weight: 60 kg

DRUGS (1)
  1. ZOMETA [Suspect]
     Indication: BREAST CANCER METASTATIC
     Dosage: 4 MG, ONCE/SINGLE
     Route: 042
     Dates: start: 20041109, end: 20041109

REACTIONS (5)
  - ANGINA PECTORIS [None]
  - DEHYDRATION [None]
  - ELECTROCARDIOGRAM ABNORMAL [None]
  - SYNCOPE [None]
  - TROPONIN I INCREASED [None]
